FAERS Safety Report 4672885-5 (Version None)
Quarter: 2005Q2

REPORT INFORMATION
  Report Type: 
  Country: None (occurrence: None)
  Receive Date: 20050523
  Receipt Date: 20050516
  Transmission Date: 20051028
  Serious: Yes (Hospitalization, Other)
  Sender: FDA-Public Use
  Company Number: 2005055287

PATIENT
  Age: 54 Year
  Sex: Female

DRUGS (6)
  1. ZOLOFT [Suspect]
     Indication: MAJOR DEPRESSION
     Dosage: 1 D ORAL
     Route: 048
  2. NEURONTIN [Suspect]
     Indication: PAIN
     Dosage: 300 MG ORAL
     Route: 048
  3. DULOXETINE HYDROCHLORIDE (DULOXETINE HYDROCHLORIDE) [Suspect]
     Indication: PAIN
     Dosage: 30 MG (30 MG, 1 IN 1 D) ORAL
     Route: 048
     Dates: start: 20050101
  4. OXYGEN (OXYGEN) [Suspect]
     Indication: SLEEP APNOEA SYNDROME
  5. ALL OTHER THERAPEUTIC PRODUCTS (ALL OTHER THERAPEUTIC PRODUCTS) [Suspect]
     Indication: THYROID DISORDER
  6. GLYCERYL TRINITRATE (GLYCERYL TRINITRATE) [Suspect]
     Indication: ILL-DEFINED DISORDER

REACTIONS (14)
  - ANXIETY [None]
  - CARPAL TUNNEL SYNDROME [None]
  - CARTILAGE INJURY [None]
  - DRUG INTERACTION [None]
  - GASTROOESOPHAGEAL REFLUX DISEASE [None]
  - INTERSTITIAL LUNG DISEASE [None]
  - LOOSE BODY IN JOINT [None]
  - MUSCLE DISORDER [None]
  - MYOCARDIAL INFARCTION [None]
  - NIGHTMARE [None]
  - POLYTRAUMATISM [None]
  - ROAD TRAFFIC ACCIDENT [None]
  - SLEEP APNOEA SYNDROME [None]
  - WEIGHT INCREASED [None]
